FAERS Safety Report 18177073 (Version 1)
Quarter: 2020Q3

REPORT INFORMATION
  Report Type: Spontaneous
  Country: US (occurrence: US)
  Receive Date: 20200821
  Receipt Date: 20200821
  Transmission Date: 20201103
  Serious: No
  Sender: FDA-Public Use
  Company Number: US-SHIRE-US202026682

PATIENT
  Sex: Female
  Weight: 82.4 kg

DRUGS (1)
  1. CUVITRU [Suspect]
     Active Substance: HUMAN IMMUNOGLOBULIN G
     Indication: ATRIAL FIBRILLATION
     Dosage: UNK UNK, EVERY 14 DAYS
     Route: 058

REACTIONS (2)
  - Product use in unapproved indication [Unknown]
  - No adverse event [Unknown]
